FAERS Safety Report 8664172 (Version 2)
Quarter: 2012Q4

REPORT INFORMATION
  Report Type: 
  Country: FR (occurrence: FR)
  Receive Date: 20120713
  Receipt Date: 20121016
  Transmission Date: 20130627
  Serious: Yes (Hospitalization)
  Sender: FDA-Public Use
  Company Number: FR-ROCHE-1083357

PATIENT
  Age: 67 Year
  Sex: Female
  Weight: 71 kg

DRUGS (11)
  1. AVASTIN [Suspect]
     Indication: COLON CANCER
     Route: 042
     Dates: start: 20110301, end: 20120604
  2. CORGARD [Concomitant]
  3. SEROPRAM (FRANCE) [Concomitant]
  4. SPIFEN [Concomitant]
  5. XANAX [Concomitant]
  6. FOLINIC ACID [Concomitant]
     Route: 065
     Dates: start: 201103
  7. FOLINIC ACID [Concomitant]
     Route: 065
     Dates: start: 201105
  8. 5-FU [Concomitant]
     Route: 065
     Dates: start: 201103
  9. 5-FU [Concomitant]
     Route: 065
     Dates: start: 201105
  10. OXALIPLATIN [Concomitant]
     Route: 065
     Dates: start: 201103
  11. OXALIPLATIN [Concomitant]
     Route: 065
     Dates: start: 201105

REACTIONS (5)
  - Leukoencephalopathy [Recovered/Resolved]
  - Hypertension [Recovered/Resolved]
  - Sensorimotor disorder [Recovered/Resolved]
  - Paraesthesia [Recovered/Resolved]
  - Headache [Recovered/Resolved]
